FAERS Safety Report 7681026-1 (Version None)
Quarter: 2011Q3

REPORT INFORMATION
  Report Type: 
  Country: None (occurrence: None)
  Receive Date: 20110812
  Receipt Date: 20110713
  Transmission Date: 20111222
  Serious: Yes (Hospitalization)
  Sender: FDA-Public Use
  Company Number: GB-BAYER-2011-063297

PATIENT
  Age: 77 Year
  Sex: Male

DRUGS (8)
  1. BISOPROLOL FUMARATE [Concomitant]
  2. CLOPIDOGREL [Suspect]
     Indication: CEREBROVASCULAR ACCIDENT PROPHYLAXIS
     Dosage: 75 MG, UNK
     Dates: start: 20110625, end: 20110701
  3. PERINDOPRIL [Concomitant]
  4. ISOSORBIDE MONONITRATE [Concomitant]
     Dosage: 60 MG, QD
  5. ATORVASTATIN [Concomitant]
  6. SENNA [Concomitant]
  7. ACETYLSALICYLIC ACID SRT [Suspect]
     Indication: CEREBROVASCULAR ACCIDENT
     Dosage: 300 MG, QD
     Dates: start: 20110612, end: 20110624
  8. WARFARIN SODIUM [Concomitant]
     Dosage: UNK
     Dates: start: 20110612

REACTIONS (2)
  - DUODENAL ULCER [None]
  - MELAENA [None]
